FAERS Safety Report 5923212-4 (Version None)
Quarter: 2008Q4

REPORT INFORMATION
  Report Type: 
  Country: None (occurrence: None)
  Receive Date: 20081015
  Receipt Date: 20080916
  Transmission Date: 20090506
  Serious: Yes (Other)
  Sender: FDA-Public Use
  Company Number: FABR-1000451

PATIENT
  Age: 11 Year
  Sex: Male

DRUGS (1)
  1. FABRAZYME [Suspect]
     Indication: FABRY'S DISEASE
     Dosage: 1 MG, Q2W, INTRAVENOUS
     Route: 042
     Dates: start: 20040101

REACTIONS (1)
  - SUDDEN HEARING LOSS [None]
